FAERS Safety Report 9669614 (Version 2)
Quarter: 2013Q4

REPORT INFORMATION
  Report Type: Spontaneous
  Country: CN (occurrence: CN)
  Receive Date: 20131105
  Receipt Date: 20131105
  Transmission Date: 20140711
  Serious: Yes (Other)
  Sender: FDA-Public Use
  Company Number: CN-ABBVIE-13P-035-1036821-00

PATIENT
  Age: 15 Year
  Sex: Male

DRUGS (2)
  1. DEPAKINE CHRONO [Suspect]
     Indication: EPILEPSY
     Dosage: EXTENDED RELEASE
     Route: 048
     Dates: start: 2011, end: 20121219
  2. DEPAKINE CHRONO [Suspect]
     Route: 048
     Dates: start: 20121220, end: 20130109

REACTIONS (3)
  - Epilepsy [Recovered/Resolved]
  - Muscle spasms [Recovered/Resolved]
  - Product counterfeit [Unknown]
